FAERS Safety Report 15975319 (Version 4)
Quarter: 2022Q1

REPORT INFORMATION
  Report Type: Spontaneous
  Country: GR (occurrence: GR)
  Receive Date: 20190218
  Receipt Date: 20220211
  Transmission Date: 20220423
  Serious: Yes (Hospitalization, Disabling, Other)
  Sender: FDA-Public Use
  Company Number: None

PATIENT
  Age: 81 Year
  Sex: Female

DRUGS (9)
  1. ATORVASTATIN [Suspect]
     Active Substance: ATORVASTATIN
     Indication: Coronary artery disease
  2. CLOPIDOGREL [Suspect]
     Active Substance: CLOPIDOGREL BISULFATE
     Indication: Coronary artery disease
     Dosage: DISCONTINUED FOR 7 DAYS UNTIL SURGERY
  3. GLICLAZIDE [Suspect]
     Active Substance: GLICLAZIDE
     Indication: Diabetes mellitus
  4. IRBESARTAN [Suspect]
     Active Substance: IRBESARTAN
     Indication: Coronary artery disease
  5. EPLERENONE [Suspect]
     Active Substance: EPLERENONE
     Indication: Coronary artery disease
  6. PENTOXIFYLLINE [Suspect]
     Active Substance: PENTOXIFYLLINE
     Indication: Peripheral artery occlusion
     Dosage: UNK
  7. ENOXAPARIN SODIUM [Suspect]
     Active Substance: ENOXAPARIN SODIUM
     Indication: Atrial fibrillation
     Dosage: 80 MG, BID
  8. HEPARIN [Suspect]
     Active Substance: HEPARIN SODIUM
     Indication: Anticoagulant therapy
     Dosage: UNK
  9. CARVEDILOL [Suspect]
     Active Substance: CARVEDILOL
     Indication: Coronary artery disease
     Dosage: UNK

REACTIONS (5)
  - Fall [Unknown]
  - Paraplegia [Unknown]
  - Femoral neck fracture [Unknown]
  - Spinal epidural haematoma [Unknown]
  - Atrial fibrillation [Unknown]
